FAERS Safety Report 6992503-0 (Version None)
Quarter: 2010Q3

REPORT INFORMATION
  Report Type: 
  Country: None (occurrence: None)
  Receive Date: 20100917
  Receipt Date: 20100806
  Transmission Date: 20110219
  Serious: Yes (Hospitalization, Other)
  Sender: FDA-Public Use
  Company Number: US-BAYER-201016033NA

PATIENT
  Age: 39 Year
  Sex: Female
  Weight: 59 kg

DRUGS (3)
  1. YASMIN [Suspect]
     Indication: CONTRACEPTION
     Route: 048
     Dates: start: 20040801, end: 20050901
  2. ACIPLAX [Concomitant]
     Indication: GASTROOESOPHAGEAL REFLUX DISEASE
  3. AMPICILLIN SODIUM [Concomitant]
     Indication: ROSACEA

REACTIONS (4)
  - CHEST PAIN [None]
  - DYSPNOEA [None]
  - PULMONARY EMBOLISM [None]
  - PULMONARY INFARCTION [None]
